FAERS Safety Report 9918878 (Version 1)
Quarter: 2014Q1

REPORT INFORMATION
  Report Type: Spontaneous
  Country: US (occurrence: US)
  Receive Date: 20140224
  Receipt Date: 20140224
  Transmission Date: 20141002
  Serious: No
  Sender: FDA-Public Use
  Company Number: US-PFIZER INC-2014048817

PATIENT
  Age: 55 Year
  Sex: Male
  Weight: 79.4 kg

DRUGS (2)
  1. MORPHINE SULFATE [Suspect]
     Indication: BACK PAIN
     Dosage: 60 MG, 2X/DAY
     Route: 048
     Dates: start: 201401
  2. SAVELLA [Concomitant]
     Indication: SPINAL COMPRESSION FRACTURE
     Dosage: 50 MG, 2X/DAY

REACTIONS (1)
  - Drug ineffective [Unknown]
